FAERS Safety Report 15968337 (Version 1)
Quarter: 2019Q1

REPORT INFORMATION
  Report Type: Spontaneous
  Country: IL (occurrence: IL)
  Receive Date: 20190215
  Receipt Date: 20190215
  Transmission Date: 20190418
  Serious: Yes (Other)
  Sender: FDA-Public Use
  Company Number: IL-IMPAX LABORATORIES, LLC-2019-IPXL-00501

PATIENT
  Age: 12 Year
  Sex: Female

DRUGS (1)
  1. PROPRANOLOL HYDROCHLORIDE IR [Suspect]
     Active Substance: PROPRANOLOL HYDROCHLORIDE
     Indication: PYOGENIC GRANULOMA
     Dosage: UNK
     Route: 061

REACTIONS (2)
  - Off label use [Unknown]
  - Tumour haemorrhage [Unknown]
